FAERS Safety Report 12900970 (Version 3)
Quarter: 2016Q4

REPORT INFORMATION
  Report Type: Spontaneous
  Country: GB (occurrence: GB)
  Receive Date: 20161101
  Receipt Date: 20161229
  Transmission Date: 20170207
  Serious: Yes (Hospitalization)
  Sender: FDA-Public Use
  Company Number: GB-BAYER-2016-208356

PATIENT
  Age: 50 Year
  Sex: Female

DRUGS (7)
  1. ESTRADERM [Concomitant]
     Active Substance: ESTRADIOL
     Dosage: 1 DF, BIW
     Dates: start: 20160715
  2. MIRENA [Suspect]
     Active Substance: LEVONORGESTREL
     Dosage: 20 MCG/24HR, CONT
     Route: 015
     Dates: start: 20160611, end: 20161003
  3. LEVOTHYROXINE. [Concomitant]
     Active Substance: LEVOTHYROXINE
     Dosage: 1 DF, QD
     Route: 048
     Dates: start: 201601
  4. TRANEXAMIC [Concomitant]
     Dosage: 1 DF, QID
     Route: 048
     Dates: start: 20160607
  5. MIRENA [Suspect]
     Active Substance: LEVONORGESTREL
  6. FERROUS FUMARATE [Concomitant]
     Active Substance: FERROUS FUMARATE
     Dosage: 1 DF, TID
     Route: 048
     Dates: start: 201601
  7. UTOVLAN [Concomitant]
     Indication: HAEMORRHAGE
     Dosage: 1 DF, TID
     Route: 048

REACTIONS (12)
  - Seizure [None]
  - Insomnia [None]
  - Hot flush [None]
  - Seizure [None]
  - Intentional medical device removal by patient [None]
  - Weight increased [None]
  - Seizure [None]
  - Hyperhidrosis [None]
  - Seizure [None]
  - Seizure [None]
  - Middle insomnia [None]
  - Memory impairment [None]

NARRATIVE: CASE EVENT DATE: 201606
